FAERS Safety Report 5133499-6 (Version None)
Quarter: 2006Q4

REPORT INFORMATION
  Report Type: 
  Country: None (occurrence: None)
  Receive Date: 20061024
  Receipt Date: 20031203
  Transmission Date: 20070319
  Serious: Yes (Other)
  Sender: FDA-Public Use
  Company Number: PHBS2003BR13581

PATIENT
  Age: 58 Year
  Sex: Female
  Weight: 65 kg

DRUGS (10)
  1. OLCADIL [Concomitant]
  2. DIOVAN HCT [Suspect]
     Indication: HYPERTENSION
     Dosage: VAL 160 / HCT 12.5 MG/DAY
     Route: 048
     Dates: start: 20021201
  3. DIOVAN HCT [Suspect]
     Dosage: VALS 160 / HCT 25 MG/DAY
     Route: 048
  4. OMEPRAZOLE [Concomitant]
     Indication: GASTRITIS
     Dosage: 1 DF, UNK
     Route: 048
  5. BRICANYL [Concomitant]
     Indication: ASTHMA
     Dosage: UNK, PRN
  6. MONTELUKAST SODIUM [Concomitant]
     Indication: ASTHMA
     Dosage: 10 MG, UNK
     Route: 048
  7. ESTRADIOL + NORETHISTERONE ACETATE [Concomitant]
     Indication: HORMONE REPLACEMENT THERAPY
     Dosage: 1 DF, UNK
     Route: 048
  8. GLYBURIDE [Concomitant]
     Indication: DIABETES MELLITUS NON-INSULIN-DEPENDENT
     Dosage: .5 DF, BID
     Route: 048
  9. FORASEQ [Suspect]
     Indication: ASTHMA
     Dosage: FORM 24 / BUDES 800 UG,BID
  10. RYTHMOL [Suspect]
     Indication: ARRHYTHMIA
     Dosage: 150 MG, BID

REACTIONS (10)
  - DIZZINESS [None]
  - DRUG INTERACTION [None]
  - DYSPNOEA [None]
  - FEELING HOT [None]
  - HYPOGLYCAEMIA [None]
  - HYPOTENSION [None]
  - LABYRINTHITIS [None]
  - SKIN DISCOLOURATION [None]
  - VERTIGO [None]
  - VISUAL DISTURBANCE [None]
